FAERS Safety Report 9162828 (Version 1)
Quarter: 2013Q1

REPORT INFORMATION
  Report Type: Spontaneous
  Country: ES (occurrence: ES)
  Receive Date: 20130314
  Receipt Date: 20130314
  Transmission Date: 20140127
  Serious: Yes (Hospitalization, Other)
  Sender: FDA-Public Use
  Company Number: ES-PFIZER INC-2013080092

PATIENT
  Age: 90 Year
  Sex: Female

DRUGS (3)
  1. EPANUTIN [Suspect]
     Indication: EPILEPSY
     Dosage: 100 MG, 3X/DAY
     Route: 048
     Dates: start: 2002, end: 201210
  2. EPANUTIN [Suspect]
     Dosage: 500 MG/DAY (167 MG, 3XDAY)
     Route: 048
     Dates: start: 201210, end: 201212
  3. ACENOCUMAROL [Concomitant]
     Indication: DEEP VEIN THROMBOSIS
     Dosage: UNK
     Route: 048
     Dates: start: 201210

REACTIONS (4)
  - Overdose [Unknown]
  - Somnolence [Recovered/Resolved]
  - Gait disturbance [Recovered/Resolved]
  - Disorientation [Recovered/Resolved]
